FAERS Safety Report 10862559 (Version 2)
Quarter: 2016Q3

REPORT INFORMATION
  Report Type: Spontaneous
  Country: JP (occurrence: JP)
  Receive Date: 20150223
  Receipt Date: 20160907
  Transmission Date: 20161109
  Serious: Yes (Hospitalization)
  Sender: FDA-Public Use
  Company Number: JP-ABBVIE-15P-087-1347142-00

PATIENT
  Age: 63 Year
  Sex: Female

DRUGS (3)
  1. DEPAKINE [Suspect]
     Active Substance: VALPROATE SODIUM
     Indication: SCHIZOPHRENIA
     Route: 048
     Dates: start: 20130611, end: 20140222
  2. ROHYPNOL [Suspect]
     Active Substance: FLUNITRAZEPAM
     Indication: SCHIZOPHRENIA
     Route: 048
     Dates: start: 20130625, end: 20140220
  3. OLANZAPINE. [Suspect]
     Active Substance: OLANZAPINE
     Indication: SCHIZOPHRENIA
     Route: 048
     Dates: start: 20130709, end: 20140221

REACTIONS (3)
  - Electrocardiogram J wave [Recovered/Resolved]
  - Sinus bradycardia [Recovered/Resolved]
  - Hypothermia [Recovered/Resolved]

NARRATIVE: CASE EVENT DATE: 201402
